FAERS Safety Report 15540328 (Version 1)
Quarter: 2018Q4

REPORT INFORMATION
  Report Type: Spontaneous
  Country: US (occurrence: US)
  Receive Date: 20181023
  Receipt Date: 20181023
  Transmission Date: 20190205
  Serious: No
  Sender: FDA-Public Use
  Company Number: US-PFIZER INC-2018432130

PATIENT
  Age: 63 Year
  Sex: Female

DRUGS (1)
  1. LYRICA [Suspect]
     Active Substance: PREGABALIN
     Dosage: 4 G, DAILY (1 G AM + 1 G NOON + 2 G PM PO)
     Route: 048

REACTIONS (3)
  - Weight increased [Unknown]
  - Prescribed overdose [Unknown]
  - Drug tolerance [Unknown]
